FAERS Safety Report 21206513 (Version 1)
Quarter: 2022Q3

REPORT INFORMATION
  Report Type: Spontaneous
  Country: US (occurrence: None)
  Receive Date: 20220811
  Receipt Date: 20220811
  Transmission Date: 20221027
  Serious: Yes (Other)
  Sender: FDA-Public Use
  Company Number: None

PATIENT
  Age: 56 Year
  Sex: Female
  Weight: 96.3 kg

DRUGS (7)
  1. EGRIFTA SV [Suspect]
     Active Substance: TESAMORELIN ACETATE
     Indication: Lipodystrophy acquired
     Dosage: 0.35 ML DAILY SUBCUTANEOUS?
     Route: 058
     Dates: start: 20220309, end: 20220513
  2. albuterol sulfate HFA 108 mcg/act inhaler [Concomitant]
     Dates: start: 20120309
  3. AMLODIPINE [Concomitant]
     Active Substance: AMLODIPINE BESYLATE
     Dates: start: 20210512
  4. BIKTARVY [Concomitant]
     Active Substance: BICTEGRAVIR SODIUM\EMTRICITABINE\TENOFOVIR ALAFENAMIDE FUMARATE
     Dates: start: 20211115
  5. NYSTATIN [Concomitant]
     Active Substance: NYSTATIN
     Dates: start: 20220517
  6. vitamin D 25 mcg tablet [Concomitant]
     Dates: start: 20210728
  7. MINERALS\VITAMINS [Concomitant]
     Active Substance: MINERALS\VITAMINS
     Dates: start: 20211005

REACTIONS (1)
  - Mood altered [None]
